FAERS Safety Report 20049353 (Version 2)
Quarter: 2021Q4

REPORT INFORMATION
  Report Type: Spontaneous
  Country: US (occurrence: US)
  Receive Date: 20211109
  Receipt Date: 20211119
  Transmission Date: 20220304
  Serious: Yes (Other)
  Sender: FDA-Public Use
  Company Number: US-OCULAR THERAPEUTIX-2021OCX00050

PATIENT
  Sex: Female

DRUGS (4)
  1. DEXTENZA [Suspect]
     Active Substance: DEXAMETHASONE
     Indication: Cataract operation
     Dosage: INSERTED INTO THE RIGHT PUNCTUM
     Dates: start: 20210922
  2. DEXTENZA [Suspect]
     Active Substance: DEXAMETHASONE
     Indication: Post procedural inflammation
  3. KETOROLAC [Concomitant]
     Active Substance: KETOROLAC TROMETHAMINE
     Dosage: UNK, 3X/DAY STARTING 3 DAYS PRIOR TO SURGERY AND LASTING 1 MONTH POST OP
     Dates: start: 20210919, end: 202110
  4. OCUFLOX [Concomitant]
     Active Substance: OFLOXACIN
     Dosage: UNK, 3X/DAY STARTING 3 DAYS PRIOR TO SURGERY AND LASTING 1 MONTH POST OP
     Dates: start: 20210919, end: 202110

REACTIONS (5)
  - Endophthalmitis [Not Recovered/Not Resolved]
  - Retinal detachment [Unknown]
  - Vitritis [Unknown]
  - Hypopyon [Unknown]
  - Iritis [Unknown]

NARRATIVE: CASE EVENT DATE: 20210101
